FAERS Safety Report 5877214-7 (Version None)
Quarter: 2008Q3

REPORT INFORMATION
  Report Type: 
  Country: None (occurrence: None)
  Receive Date: 20080910
  Receipt Date: 20080710
  Transmission Date: 20090109
  Serious: Yes (Other)
  Sender: FDA-Public Use
  Company Number: BE-PFIZER INC-2008058178

PATIENT
  Sex: Male
  Weight: 96 kg

DRUGS (7)
  1. CHANTIX [Suspect]
     Indication: SMOKING CESSATION THERAPY
     Route: 048
     Dates: start: 20080603, end: 20080615
  2. DURAGESIC-100 [Concomitant]
     Route: 051
  3. LAMICTAL [Concomitant]
     Route: 048
  4. EFFEXOR [Concomitant]
     Route: 048
  5. DULCOLAX [Concomitant]
     Route: 048
  6. LYRICA [Concomitant]
     Dosage: DAILY DOSE:375MG-FREQ:DAILY
     Route: 048
  7. ALL OTHER THERAPEUTIC PRODUCTS [Concomitant]

REACTIONS (1)
  - EPILEPSY [None]
